FAERS Safety Report 24645034 (Version 2)
Quarter: 2024Q4

REPORT INFORMATION
  Report Type: Spontaneous
  Country: US (occurrence: None)
  Receive Date: 20241121
  Receipt Date: 20241226
  Transmission Date: 20250115
  Serious: No
  Sender: UMEDICA LABS
  Company Number: US-Umedica-000572

PATIENT

DRUGS (1)
  1. SILDENAFIL CITRATE [Suspect]
     Active Substance: SILDENAFIL CITRATE
     Indication: Product used for unknown indication

REACTIONS (2)
  - Product quality issue [Unknown]
  - Drug ineffective [Unknown]
